FAERS Safety Report 15208723 (Version 2)
Quarter: 2018Q3

REPORT INFORMATION
  Report Type: Spontaneous
  Country: CH (occurrence: CH)
  Receive Date: 20180727
  Receipt Date: 20180929
  Transmission Date: 20181010
  Serious: Yes (Other)
  Sender: FDA-Public Use
  Company Number: CH-BRISTOL-MYERS SQUIBB COMPANY-BMS-2018-068421

PATIENT

DRUGS (1)
  1. OPDIVO [Suspect]
     Active Substance: NIVOLUMAB
     Indication: HEPATOCELLULAR CARCINOMA
     Dosage: UNAVAILABLE
     Route: 065

REACTIONS (2)
  - Product use in unapproved indication [Unknown]
  - Liver disorder [Unknown]
